FAERS Safety Report 16216544 (Version 5)
Quarter: 2025Q3

REPORT INFORMATION
  Report Type: Spontaneous
  Country: EU (occurrence: EU)
  Receive Date: 20190419
  Receipt Date: 20250731
  Transmission Date: 20251021
  Serious: Yes (Other)
  Sender: AUROBINDO
  Company Number: EU-NOVPHSZ-PHHY2019PT073323

PATIENT
  Age: 36 Year
  Sex: Female

DRUGS (6)
  1. DESOGESTREL [Suspect]
     Active Substance: DESOGESTREL
     Indication: Contraception
     Route: 048
  2. FLUCONAZOLE [Suspect]
     Active Substance: FLUCONAZOLE
     Indication: Antifungal treatment
     Route: 048
  3. FLUCONAZOLE [Suspect]
     Active Substance: FLUCONAZOLE
     Route: 048
  4. FLUCONAZOLE [Suspect]
     Active Substance: FLUCONAZOLE
     Route: 065
  5. FLUCLOXACILLIN [Suspect]
     Active Substance: FLUCLOXACILLIN
     Indication: Product used for unknown indication
     Dosage: 500 MILLIGRAM, 3 TIMES A DAY
     Route: 048
  6. ACETAMINOPHEN [Suspect]
     Active Substance: ACETAMINOPHEN
     Indication: Pain
     Route: 065

REACTIONS (7)
  - Skin burning sensation [Recovered/Resolved]
  - Pain [Recovered/Resolved]
  - Mastitis fungal [Recovered/Resolved]
  - Hyperaemia [Recovered/Resolved]
  - Breast pain [Recovered/Resolved]
  - Maternal exposure during breast feeding [Unknown]
  - Exposure via breast milk [Unknown]
